FAERS Safety Report 10655140 (Version 1)
Quarter: 2014Q4

REPORT INFORMATION
  Report Type: Spontaneous
  Country: US (occurrence: US)
  Receive Date: 20141216
  Receipt Date: 20141216
  Transmission Date: 20150529
  Serious: No
  Sender: FDA-Public Use
  Company Number: US-MYLANLABS-2014SP005611

PATIENT
  Sex: Female

DRUGS (5)
  1. CEFALEXIN [Suspect]
     Active Substance: CEPHALEXIN
  2. DOXYCYCLINE. [Suspect]
     Active Substance: DOXYCYCLINE
  3. LYRICA [Concomitant]
     Active Substance: PREGABALIN
     Route: 048
  4. AMOXI-CLAVULANICO [Suspect]
     Active Substance: AMOXICILLIN\CLAVULANIC ACID
  5. METRONIDAZOLE TABLETS [Suspect]
     Active Substance: METRONIDAZOLE

REACTIONS (7)
  - Vomiting [Unknown]
  - Drug hypersensitivity [Unknown]
  - Diarrhoea [Unknown]
  - Gastrointestinal disorder [Unknown]
  - Drug intolerance [Unknown]
  - Abdominal pain upper [Unknown]
  - Nausea [Unknown]
